FAERS Safety Report 18383642 (Version 2)
Quarter: 2020Q4

REPORT INFORMATION
  Report Type: Spontaneous
  Country: FR (occurrence: FR)
  Receive Date: 20201014
  Receipt Date: 20201020
  Transmission Date: 20210114
  Serious: Yes (Life-Threatening)
  Sender: FDA-Public Use
  Company Number: FR-MYLANLABS-2020M1086209

PATIENT
  Age: 61 Year
  Sex: Male
  Weight: 80 kg

DRUGS (3)
  1. ISOPTINE [Suspect]
     Active Substance: VERAPAMIL HYDROCHLORIDE
     Indication: MYOCARDIAL ISCHAEMIA
     Dosage: 1 DOSAGE FORM, QD
     Dates: end: 20200829
  2. CHLORURE DE POTASSIUM [Suspect]
     Active Substance: POTASSIUM CHLORIDE
     Indication: PRODUCT USED FOR UNKNOWN INDICATION
     Dosage: 2 GRAM
     Route: 042
     Dates: start: 20200828, end: 20200828
  3. BACTRIM [Suspect]
     Active Substance: SULFAMETHOXAZOLE\TRIMETHOPRIM
     Indication: OPPORTUNISTIC INFECTION PROPHYLAXIS
     Dosage: UNK
     Route: 048
     Dates: start: 20200826

REACTIONS (3)
  - Wrong patient received product [Unknown]
  - Cardiac arrest [Unknown]
  - Bradycardia [Unknown]

NARRATIVE: CASE EVENT DATE: 20200828
